FAERS Safety Report 4464163-4 (Version None)
Quarter: 2004Q3

REPORT INFORMATION
  Report Type: 
  Country: None (occurrence: None)
  Receive Date: 20040930
  Receipt Date: 20040930
  Transmission Date: 20050211
  Serious: Yes (Other)
  Sender: FDA-Public Use
  Company Number: None

PATIENT
  Sex: Female
  Weight: 77.1115 kg

DRUGS (2)
  1. TRANSDERM SCOP [Suspect]
     Indication: DIZZINESS
     Dosage: 1 PATCH EVERY 3 DAYS, ALTERNATING EARS
     Dates: start: 20040909, end: 20040913
  2. SYNTHROID [Concomitant]

REACTIONS (4)
  - CONFUSIONAL STATE [None]
  - FEAR [None]
  - HALLUCINATION, VISUAL [None]
  - TREMOR [None]
